FAERS Safety Report 14527885 (Version 1)
Quarter: 2018Q1

REPORT INFORMATION
  Report Type: Spontaneous
  Country: JP (occurrence: JP)
  Receive Date: 20180213
  Receipt Date: 20180213
  Transmission Date: 20180509
  Serious: Yes (Other)
  Sender: FDA-Public Use
  Company Number: JP-TERSERA THERAPEUTICS, LLC-2041904

PATIENT
  Sex: Male

DRUGS (3)
  1. ZOLADEX [Suspect]
     Active Substance: GOSERELIN ACETATE
     Indication: PROSTATE CANCER
     Route: 058
  2. CASODEX [Suspect]
     Active Substance: BICALUTAMIDE
     Route: 048
  3. GONADORELIN [Concomitant]
     Active Substance: GONADORELIN

REACTIONS (4)
  - Bone pain [Unknown]
  - Blood alkaline phosphatase increased [Unknown]
  - Influenza [Not Recovered/Not Resolved]
  - Fracture [Unknown]
